FAERS Safety Report 18269645 (Version 1)
Quarter: 2020Q3

REPORT INFORMATION
  Report Type: Spontaneous
  Country: BE (occurrence: BE)
  Receive Date: 20200915
  Receipt Date: 20200915
  Transmission Date: 20201103
  Serious: Yes (Death, Other)
  Sender: FDA-Public Use
  Company Number: BE-AMGEN-BELSP2020147087

PATIENT

DRUGS (5)
  1. SUNITINIB [Concomitant]
     Active Substance: SUNITINIB
     Indication: PAPILLARY RENAL CELL CARCINOMA
  2. XGEVA [Suspect]
     Active Substance: DENOSUMAB
     Indication: METASTASES TO BONE
     Dosage: UNK
     Route: 065
  3. SORAFENIB [Concomitant]
     Active Substance: SORAFENIB
     Indication: PAPILLARY RENAL CELL CARCINOMA
  4. PAZOPANIB [Concomitant]
     Active Substance: PAZOPANIB
     Indication: PAPILLARY RENAL CELL CARCINOMA
  5. AXITINIB [Concomitant]
     Active Substance: AXITINIB
     Indication: PAPILLARY RENAL CELL CARCINOMA

REACTIONS (2)
  - Death [Fatal]
  - Disease progression [Unknown]
